FAERS Safety Report 18457399 (Version 7)
Quarter: 2021Q3

REPORT INFORMATION
  Report Type: Spontaneous
  Country: JP (occurrence: JP)
  Receive Date: 20201103
  Receipt Date: 20210818
  Transmission Date: 20211014
  Serious: Yes (Death, Life-Threatening, Hospitalization, Other)
  Sender: FDA-Public Use
  Company Number: JP-009507513-2010JPN000189J

PATIENT
  Age: 71 Year
  Sex: Male
  Weight: 55 kg

DRUGS (12)
  1. JANUVIA [Concomitant]
     Active Substance: SITAGLIPTIN PHOSPHATE
     Dosage: 50 MILLIGRAM, QD
     Route: 048
  2. BELSOMRA [Concomitant]
     Active Substance: SUVOREXANT
     Dosage: 20 MILLIGRAM, QD
     Route: 048
  3. PRAVASTATIN SODIUM. [Concomitant]
     Active Substance: PRAVASTATIN SODIUM
     Dosage: 10 MILLIGRAM, QD
     Route: 048
  4. PEMETREXED DISODIUM [Suspect]
     Active Substance: PEMETREXED DISODIUM
     Indication: LUNG ADENOCARCINOMA STAGE IV
     Dosage: 800 MILLIGRAM, Q3W
     Route: 041
     Dates: start: 20200408, end: 20200911
  5. KEYTRUDA [Suspect]
     Active Substance: PEMBROLIZUMAB
     Indication: LUNG ADENOCARCINOMA STAGE IV
     Dosage: 200 MILLIGRAM, Q3W
     Route: 041
     Dates: start: 20200408, end: 20200911
  6. ROZEREM [Concomitant]
     Active Substance: RAMELTEON
     Dosage: 8 MILLIGRAM, QD
     Route: 048
  7. PANVITAN [ASCORBIC ACID;CALCIUM PANTOTHENATE;CYANOCOBALAMIN;ERGOCALCIF [Concomitant]
     Dosage: 1 GRAM, QD
     Route: 048
     Dates: start: 20200401
  8. BENIDIPINE HYDROCHLORIDE [Concomitant]
     Active Substance: BENIDIPINE HYDROCHLORIDE
     Dosage: 4 MILLIGRAM, QD
     Route: 048
  9. CISPLATIN. [Concomitant]
     Active Substance: CISPLATIN
     Indication: LUNG ADENOCARCINOMA STAGE IV
     Dosage: 120 MILLIGRAM, Q3W
     Route: 041
     Dates: start: 20200408, end: 20200612
  10. TAKECAB [Concomitant]
     Active Substance: VONOPRAZAN FUMARATE
     Dosage: 10 MILLIGRAM, QD
     Route: 048
     Dates: start: 20200401
  11. ENALAPRIL [ENALAPRIL MALEATE] [Concomitant]
     Active Substance: ENALAPRIL MALEATE
     Dosage: 5 MILLIGRAM, QD
     Route: 048
  12. BROTIZOLAM [Concomitant]
     Active Substance: BROTIZOLAM
     Dosage: 0.25 MILLIGRAM, QD
     Route: 048

REACTIONS (5)
  - Off label use [Unknown]
  - Malignant neoplasm progression [Fatal]
  - Pneumomediastinum [Unknown]
  - Interstitial lung disease [Recovering/Resolving]
  - Malignant pleural effusion [Fatal]

NARRATIVE: CASE EVENT DATE: 2020
